FAERS Safety Report 16247042 (Version 1)
Quarter: 2019Q2

REPORT INFORMATION
  Report Type: Spontaneous
  Country: PL (occurrence: PL)
  Receive Date: 20190427
  Receipt Date: 20190427
  Transmission Date: 20190711
  Serious: Yes (Hospitalization)
  Sender: FDA-Public Use
  Company Number: PL-TEVA-2019-PL-1042163

PATIENT
  Age: 67 Year
  Sex: Male
  Weight: 73 kg

DRUGS (2)
  1. PEMETREXED. [Suspect]
     Active Substance: PEMETREXED
     Indication: MALIGNANT RESPIRATORY TRACT NEOPLASM
     Dosage: 875.17 DOSE UNIT UNKNOWN
     Route: 042
     Dates: start: 20160705, end: 20160705
  2. CISPLATIN. [Suspect]
     Active Substance: CISPLATIN
     Indication: MALIGNANT RESPIRATORY TRACT NEOPLASM
     Dosage: 131.28 DOSE UNIT UNKNOWN
     Route: 042
     Dates: start: 20160705, end: 20160705

REACTIONS (2)
  - Leukopenia [Unknown]
  - Neutropenia [Unknown]

NARRATIVE: CASE EVENT DATE: 20160725
